FAERS Safety Report 21830012 (Version 1)
Quarter: 2023Q1

REPORT INFORMATION
  Report Type: Spontaneous
  Country: JP (occurrence: JP)
  Receive Date: 20230106
  Receipt Date: 20230106
  Transmission Date: 20230418
  Serious: Yes (Death, Life-Threatening, Other)
  Sender: FDA-Public Use
  Company Number: JP-SYMBIO-202200423

PATIENT
  Age: 79 Year
  Sex: Male
  Weight: 46 kg

DRUGS (9)
  1. BENDAMUSTINE HYDROCHLORIDE [Suspect]
     Active Substance: BENDAMUSTINE HYDROCHLORIDE
     Indication: Diffuse large B-cell lymphoma recurrent
     Dosage: (ONCE DAILY)
     Route: 041
     Dates: start: 20210629, end: 20210630
  2. BENDAMUSTINE HYDROCHLORIDE [Suspect]
     Active Substance: BENDAMUSTINE HYDROCHLORIDE
     Indication: Diffuse large B-cell lymphoma refractory
     Dosage: (ONCE DAILY)
     Route: 041
     Dates: start: 20210719, end: 20210719
  3. RITUXAN [Suspect]
     Active Substance: RITUXIMAB
     Indication: Diffuse large B-cell lymphoma recurrent
     Dosage: CYCLIC
     Route: 041
     Dates: start: 20210628, end: 20210628
  4. RITUXAN [Suspect]
     Active Substance: RITUXIMAB
     Indication: Diffuse large B-cell lymphoma refractory
     Dosage: CYCLIC
     Route: 041
     Dates: start: 20210719, end: 20210719
  5. POLIVY [Suspect]
     Active Substance: POLATUZUMAB VEDOTIN-PIIQ
     Indication: Diffuse large B-cell lymphoma recurrent
     Dosage: CYCLIC
     Route: 041
     Dates: start: 20210629, end: 20210629
  6. POLIVY [Suspect]
     Active Substance: POLATUZUMAB VEDOTIN-PIIQ
     Indication: Diffuse large B-cell lymphoma refractory
     Dosage: CYCLIC
     Route: 041
     Dates: start: 20210719, end: 20210719
  7. FEBUXOSTAT [Concomitant]
     Active Substance: FEBUXOSTAT
     Indication: Hyperuricaemia
     Route: 048
     Dates: start: 20190524, end: 20210719
  8. APIXABAN [Concomitant]
     Active Substance: APIXABAN
     Indication: Deep vein thrombosis
     Route: 048
     Dates: start: 20210310, end: 20210719
  9. ENTECAVIR OD [Concomitant]
     Indication: Chronic hepatitis B
     Route: 048
     Dates: start: 20190712, end: 20210719

REACTIONS (4)
  - Tumour lysis syndrome [Fatal]
  - Infusion related reaction [Fatal]
  - Adrenal insufficiency [Fatal]
  - Off label use [Unknown]

NARRATIVE: CASE EVENT DATE: 20210719
